FAERS Safety Report 18841205 (Version 1)
Quarter: 2021Q1

REPORT INFORMATION
  Report Type: Spontaneous
  Country: CH (occurrence: CH)
  Receive Date: 20210203
  Receipt Date: 20210203
  Transmission Date: 20210419
  Serious: Yes (Death, Other)
  Sender: FDA-Public Use
  Company Number: CH-TOPROL-2019001385

PATIENT
  Age: 75 Year
  Sex: Male

DRUGS (13)
  1. BETALOC ZOK [Suspect]
     Active Substance: METOPROLOL SUCCINATE
     Indication: MIGRAINE
     Route: 048
     Dates: start: 20191125, end: 20191130
  2. BETALOC ZOK [Suspect]
     Active Substance: METOPROLOL SUCCINATE
     Indication: MIGRAINE
     Route: 048
     Dates: start: 20191130
  3. SERTRALINE [Suspect]
     Active Substance: SERTRALINE HYDROCHLORIDE
     Indication: PRODUCT USED FOR UNKNOWN INDICATION
     Dosage: 50 MG, QD
     Route: 048
     Dates: end: 20191125
  4. ANXIOLIT [Suspect]
     Active Substance: OXAZEPAM
     Indication: PRODUCT USED FOR UNKNOWN INDICATION
     Dosage: 15 MG, QD
     Route: 048
  5. ANXIOLIT [Suspect]
     Active Substance: OXAZEPAM
     Indication: PRODUCT USED FOR UNKNOWN INDICATION
     Dosage: 7.5 MG, BID
     Route: 048
     Dates: start: 20191126
  6. COAPROVEL [Suspect]
     Active Substance: HYDROCHLOROTHIAZIDE\IRBESARTAN
     Indication: PRODUCT USED FOR UNKNOWN INDICATION
     Dosage: 12.5 MG HYDROCHLOROTIAZIDE; 150 MG IRBESARTAN; AS NECESSARY
     Route: 048
     Dates: start: 20191125, end: 20191129
  7. SERTRALINE [Suspect]
     Active Substance: SERTRALINE HYDROCHLORIDE
     Indication: PRODUCT USED FOR UNKNOWN INDICATION
     Route: 048
     Dates: start: 20191130
  8. BETALOC ZOK [Suspect]
     Active Substance: METOPROLOL SUCCINATE
     Indication: MIGRAINE
     Dosage: 150 MG, QD
     Route: 048
     Dates: end: 20191125
  9. ANXIOLIT [Suspect]
     Active Substance: OXAZEPAM
     Indication: PRODUCT USED FOR UNKNOWN INDICATION
     Dosage: 15 MG, TID AS NECESSARY
     Route: 048
     Dates: start: 20191125
  10. COAPROVEL [Suspect]
     Active Substance: HYDROCHLOROTHIAZIDE\IRBESARTAN
     Indication: PRODUCT USED FOR UNKNOWN INDICATION
     Route: 048
     Dates: start: 20191125
  11. ROCEPHINE [Concomitant]
     Active Substance: CEFTRIAXONE SODIUM
     Indication: ACUTE KIDNEY INJURY
     Dosage: UNK
     Route: 065
     Dates: start: 20191128
  12. STILNOX [Suspect]
     Active Substance: ZOLPIDEM TARTRATE
     Indication: PRODUCT USED FOR UNKNOWN INDICATION
     Route: 048
     Dates: start: 20191125
  13. STILNOX [Suspect]
     Active Substance: ZOLPIDEM TARTRATE
     Indication: PRODUCT USED FOR UNKNOWN INDICATION
     Dosage: 10 MG BID
     Route: 048
     Dates: end: 20191125

REACTIONS (2)
  - Product use in unapproved indication [Unknown]
  - Thrombocytopenia [Unknown]

NARRATIVE: CASE EVENT DATE: 20191125
